FAERS Safety Report 7044985-6 (Version None)
Quarter: 2010Q4

REPORT INFORMATION
  Report Type: 
  Country: None (occurrence: None)
  Receive Date: 20101014
  Receipt Date: 20100903
  Transmission Date: 20110411
  Serious: No
  Sender: FDA-Public Use
  Company Number: US-BAXTER-2010BH003553

PATIENT
  Age: 78 Year
  Sex: Male
  Weight: 86 kg

DRUGS (4)
  1. HEPARIN SODIUM INJECTION [Suspect]
     Indication: KNEE OPERATION
     Route: 042
     Dates: start: 20080501
  2. HEPARIN SODIUM INJECTION [Suspect]
     Indication: CENTRAL VENOUS CATHETERISATION
     Route: 042
     Dates: start: 20080501
  3. ENOXAPARIN SODIUM [Suspect]
     Indication: PRODUCT USED FOR UNKNOWN INDICATION
     Route: 065
     Dates: start: 20080503, end: 20080503
  4. ENOXAPARIN SODIUM [Suspect]
     Route: 065
     Dates: start: 20080505, end: 20080505

REACTIONS (5)
  - INFECTION [None]
  - PRURITUS GENITAL [None]
  - RASH [None]
  - SYNCOPE [None]
  - URINARY INCONTINENCE [None]
